FAERS Safety Report 9686193 (Version 1)
Quarter: 2013Q4

REPORT INFORMATION
  Report Type: Spontaneous
  Country: US (occurrence: US)
  Receive Date: 20131113
  Receipt Date: 20131113
  Transmission Date: 20140711
  Serious: No
  Sender: FDA-Public Use
  Company Number: US-TEVA-443603USA

PATIENT
  Age: 25 Year
  Sex: Female
  Weight: 64.01 kg

DRUGS (3)
  1. PARAGARD 380A [Suspect]
     Indication: CONTRACEPTION
     Route: 015
     Dates: start: 20131022, end: 20131105
  2. PARAGARD 380A [Suspect]
     Dates: start: 20131105, end: 20131105
  3. VALACICLOVIR HYDROCHLORIDE [Concomitant]
     Indication: HERPES VIRUS INFECTION
     Dosage: PRN
     Route: 048

REACTIONS (1)
  - Device expulsion [Recovered/Resolved]
